FAERS Safety Report 6793255-X (Version None)
Quarter: 2010Q2

REPORT INFORMATION
  Report Type: 
  Country: None (occurrence: None)
  Receive Date: 20100624
  Receipt Date: 20091001
  Transmission Date: 20101027
  Serious: Yes (Death)
  Sender: FDA-Public Use
  Company Number: US-MYLANLABS-2009S1017248

PATIENT
  Age: 59 Year
  Sex: Male

DRUGS (10)
  1. CLOZAPINE [Suspect]
     Indication: BIPOLAR DISORDER
     Route: 048
     Dates: end: 20090825
  2. DEPAKOTE [Concomitant]
  3. SEROQUEL [Concomitant]
  4. GLYCOLAX [Concomitant]
  5. VITAMIN E [Concomitant]
  6. M.V.I. [Concomitant]
  7. MIRTAZAPINE [Concomitant]
  8. GABAPENTIN [Concomitant]
  9. OMEPRAZOLE [Concomitant]
  10. PROBIOTICA [Concomitant]

REACTIONS (2)
  - ANOXIC ENCEPHALOPATHY [None]
  - CHOKING [None]
